FAERS Safety Report 9660392 (Version 1)
Quarter: 2013Q4

REPORT INFORMATION
  Report Type: Spontaneous
  Country: US (occurrence: US)
  Receive Date: 20131031
  Receipt Date: 20131031
  Transmission Date: 20140711
  Serious: No
  Sender: FDA-Public Use
  Company Number: US-PURDUE-USA-2010-0047611

PATIENT
  Sex: Female

DRUGS (3)
  1. OXYCODONE HYDROCHLORIDE (SIMILAR TO NDA 20-553) [Suspect]
     Indication: PAIN
     Dosage: UNK
     Dates: start: 2000, end: 2000
  2. FLEXERIL                           /00428402/ [Concomitant]
     Indication: MIGRAINE
  3. VALIUM                             /00017001/ [Concomitant]

REACTIONS (2)
  - Drug hypersensitivity [Unknown]
  - Nonspecific reaction [Unknown]
